FAERS Safety Report 10550231 (Version 1)
Quarter: 2014Q4

REPORT INFORMATION
  Report Type: Spontaneous
  Country: US (occurrence: US)
  Receive Date: 20141028
  Receipt Date: 20141028
  Transmission Date: 20150529
  Serious: Yes (Hospitalization)
  Sender: FDA-Public Use
  Company Number: US-MYLANLABS-2014M1008698

PATIENT

DRUGS (4)
  1. VANCOMYCIN [Suspect]
     Active Substance: VANCOMYCIN
     Dosage: ANTIBACTERIAL SPACER IN HIP
     Route: 050
  2. CEFTRIAXONE. [Suspect]
     Active Substance: CEFTRIAXONE
     Route: 042
  3. TOBRAMYCIN. [Concomitant]
     Active Substance: TOBRAMYCIN
     Indication: ARTHRITIS INFECTIVE
     Dosage: ANTIBACTERIAL SPACER IN HIP
     Route: 050
  4. VANCOMYCIN? [Suspect]
     Active Substance: VANCOMYCIN
     Route: 042

REACTIONS (3)
  - Cerebrovascular accident [Recovering/Resolving]
  - Drug reaction with eosinophilia and systemic symptoms [Recovering/Resolving]
  - Encephalopathy [Recovering/Resolving]
